FAERS Safety Report 22656515 (Version 1)
Quarter: 2023Q2

REPORT INFORMATION
  Report Type: Report from Study
  Country: EG (occurrence: EG)
  Receive Date: 20230630
  Receipt Date: 20230630
  Transmission Date: 20230721
  Serious: Yes (Other)
  Sender: FDA-Public Use
  Company Number: EG-002147023-NVSC2023EG146972

PATIENT
  Age: 38 Year
  Sex: Male

DRUGS (6)
  1. HYRIMOZ [Suspect]
     Active Substance: ADALIMUMAB-ADAZ
     Indication: Uveitis
     Dosage: 40 MG (EVERY OTHER WEEK WITHOUT LOADING DOSE)
     Route: 065
     Dates: start: 20230221
  2. SOLUPRED [Concomitant]
     Indication: Uveitis
     Dosage: 20 MG, QD
     Route: 065
     Dates: start: 202210
  3. SOLUPRED [Concomitant]
     Dosage: 10 MG, QD
     Route: 065
  4. OPTIPRED [Concomitant]
     Indication: Uveitis
     Dosage: UNK UNK, BID
     Route: 065
     Dates: start: 202210
  5. OPTIPRED [Concomitant]
     Dosage: UNK, QD
     Route: 065
     Dates: start: 202304
  6. COSOPT [Concomitant]
     Active Substance: DORZOLAMIDE HYDROCHLORIDE\TIMOLOL MALEATE
     Indication: Uveitis
     Dosage: UNK UNK, BID
     Route: 065
     Dates: start: 202210

REACTIONS (8)
  - Stress [Not Recovered/Not Resolved]
  - Alopecia [Not Recovered/Not Resolved]
  - Product dose omission issue [Not Recovered/Not Resolved]
  - Acne [Not Recovered/Not Resolved]
  - Rash [Not Recovered/Not Resolved]
  - Fatigue [Recovered/Resolved]
  - Laziness [Recovered/Resolved]
  - Intraocular pressure increased [Unknown]

NARRATIVE: CASE EVENT DATE: 20230321
